FAERS Safety Report 6766536-3 (Version None)
Quarter: 2010Q2

REPORT INFORMATION
  Report Type: 
  Country: None (occurrence: None)
  Receive Date: 20100611
  Receipt Date: 20100608
  Transmission Date: 20101027
  Serious: Yes (Other)
  Sender: FDA-Public Use
  Company Number: GB-MERCK-1006GBR00036

PATIENT
  Age: 85 Year
  Sex: Female

DRUGS (2)
  1. INVANZ [Suspect]
     Route: 042
  2. LINEZOLID [Suspect]
     Indication: GRAFT INFECTION
     Route: 065

REACTIONS (4)
  - DIZZINESS [None]
  - HALLUCINATION [None]
  - NAUSEA [None]
  - SUICIDAL IDEATION [None]
